FAERS Safety Report 5890194-3 (Version None)
Quarter: 2008Q3

REPORT INFORMATION
  Report Type: 
  Country: None (occurrence: None)
  Receive Date: 20080919
  Receipt Date: 20080909
  Transmission Date: 20090109
  Serious: Yes (Other)
  Sender: FDA-Public Use
  Company Number: US-PFIZER INC-2008075693

PATIENT
  Sex: Female
  Weight: 81.6 kg

DRUGS (1)
  1. XANAX [Suspect]
     Dates: start: 20080909

REACTIONS (4)
  - AGGRESSION [None]
  - ANXIETY [None]
  - MALAISE [None]
  - SUICIDAL IDEATION [None]
